FAERS Safety Report 15827967 (Version 1)
Quarter: 2019Q1

REPORT INFORMATION
  Report Type: Spontaneous
  Country: US (occurrence: US)
  Receive Date: 20190115
  Receipt Date: 20190115
  Transmission Date: 20190417
  Serious: Yes (Other)
  Sender: FDA-Public Use
  Company Number: US-REGENERON PHARMACEUTICALS, INC.-2018-16288

PATIENT

DRUGS (3)
  1. EYLEA [Suspect]
     Active Substance: AFLIBERCEPT
     Indication: NEOVASCULAR AGE-RELATED MACULAR DEGENERATION
     Dosage: 2 MG, EVERY 4-8 WEEKS
     Route: 031
     Dates: start: 20141221
  2. EYLEA [Suspect]
     Active Substance: AFLIBERCEPT
     Dosage: 2 MG, EVERY 8-10 WEEKS
     Route: 031
     Dates: start: 201710, end: 201710
  3. EYLEA [Suspect]
     Active Substance: AFLIBERCEPT
     Dosage: 2 MG, 8-10 WEEKS, LAST DOSE
     Route: 031
     Dates: start: 20180222, end: 20180222

REACTIONS (5)
  - Visual acuity reduced [Recovering/Resolving]
  - Vitreal cells [Recovering/Resolving]
  - Photophobia [Recovered/Resolved]
  - Anterior chamber cell [Recovered/Resolved]
  - Eye inflammation [Not Recovered/Not Resolved]

NARRATIVE: CASE EVENT DATE: 20180222
